FAERS Safety Report 8237947 (Version 2)
Quarter: 2013Q2

REPORT INFORMATION
  Report Type: Spontaneous
  Country: US (occurrence: US)
  Receive Date: 20111109
  Receipt Date: 20130412
  Transmission Date: 20140414
  Serious: Yes (Hospitalization)
  Sender: FDA-Public Use
  Company Number: US-BAYER-2011-105936

PATIENT
  Age: 29 Year
  Sex: Female
  Weight: 70 kg

DRUGS (10)
  1. YAZ [Suspect]
     Indication: CONTRACEPTION
     Dosage: UNK
     Dates: start: 200711, end: 200802
  2. YAZ [Suspect]
     Indication: ACNE
  3. YAZ [Suspect]
     Indication: PREMENSTRUAL SYNDROME
  4. YASMIN [Suspect]
     Dosage: UNK
     Dates: start: 2006, end: 2009
  5. SEROQUEL [Concomitant]
     Dosage: 25 MG, UNK
     Dates: start: 20080209
  6. ASTHMA/BREATHING MEDICATIONS-PFS [Concomitant]
     Dosage: UNK
     Dates: start: 1993, end: 1996
  7. DIURETICS-FASTEN-PFS [Concomitant]
     Dosage: UNK
     Dates: start: 201009, end: 201012
  8. NSAID^S [Concomitant]
  9. EFFEXOR XR [Concomitant]
     Indication: GENERALISED ANXIETY DISORDER
     Dosage: UNK
     Dates: start: 2001, end: 2013
  10. ZYRTEC [CETIRIZINE HYDROCHLORIDE,PSEUDOEPHEDRINE HYDROCHLORIDE] [Concomitant]
     Indication: SEASONAL ALLERGY
     Dosage: UNK
     Dates: start: 2005, end: 2013

REACTIONS (8)
  - Pulmonary embolism [None]
  - Pain [None]
  - Injury [None]
  - General physical health deterioration [None]
  - Anxiety [None]
  - Emotional distress [None]
  - Fear [None]
  - Depression [None]
